FAERS Safety Report 6994104-7 (Version None)
Quarter: 2010Q3

REPORT INFORMATION
  Report Type: 
  Country: None (occurrence: None)
  Receive Date: 20100917
  Receipt Date: 20100115
  Transmission Date: 20110219
  Serious: No
  Sender: FDA-Public Use
  Company Number: US-ASTRAZENECA-2010SE02108

PATIENT
  Age: 61 Year
  Sex: Male

DRUGS (7)
  1. SEROQUEL [Suspect]
     Indication: BIPOLAR I DISORDER
     Route: 048
     Dates: start: 20091204
  2. SEROQUEL [Suspect]
     Route: 048
  3. SEROQUEL [Suspect]
     Route: 048
  4. SEROQUEL [Suspect]
     Route: 048
  5. SEROQUEL [Suspect]
     Route: 048
     Dates: start: 20091225
  6. LAMICTAL [Concomitant]
  7. VITAMINS [Concomitant]

REACTIONS (5)
  - ALOPECIA [None]
  - BALANCE DISORDER [None]
  - DYSARTHRIA [None]
  - MEMORY IMPAIRMENT [None]
  - TREMOR [None]
